FAERS Safety Report 12263512 (Version 1)
Quarter: 2016Q2

REPORT INFORMATION
  Report Type: Spontaneous
  Country: US (occurrence: US)
  Receive Date: 20160413
  Receipt Date: 20160413
  Transmission Date: 20160815
  Serious: No
  Sender: FDA-Public Use
  Company Number: US-JNJFOC-20160300999

PATIENT
  Sex: Male

DRUGS (2)
  1. TYLENOL [Suspect]
     Active Substance: ACETAMINOPHEN
     Indication: PRODUCT USED FOR UNKNOWN INDICATION
     Route: 061
  2. TYLENOL [Suspect]
     Active Substance: ACETAMINOPHEN
     Route: 061

REACTIONS (3)
  - Laceration [None]
  - Product package associated injury [Recovering/Resolving]
  - Product quality issue [None]
